FAERS Safety Report 7012247-9 (Version None)
Quarter: 2010Q3

REPORT INFORMATION
  Report Type: 
  Country: None (occurrence: None)
  Receive Date: 20100924
  Receipt Date: 20100915
  Transmission Date: 20110219
  Serious: Yes (Life-Threatening, Hospitalization)
  Sender: FDA-Public Use
  Company Number: FR-JNJFOC-20100905659

PATIENT
  Age: 60 Year
  Sex: Female

DRUGS (25)
  1. REMICADE [Suspect]
     Indication: RHEUMATOID ARTHRITIS
     Route: 042
  2. NORSET [Suspect]
     Indication: PRODUCT USED FOR UNKNOWN INDICATION
     Route: 048
  3. NORSET [Suspect]
     Route: 048
  4. METHOTREXATE [Suspect]
     Indication: RHEUMATOID ARTHRITIS
     Route: 048
  5. CORTANCYL [Suspect]
     Indication: RHEUMATOID ARTHRITIS
     Route: 048
  6. CORTANCYL [Suspect]
     Route: 048
  7. SPECIAFOLDINE [Suspect]
     Indication: PRODUCT USED FOR UNKNOWN INDICATION
     Route: 048
  8. SPECIAFOLDINE [Suspect]
     Route: 048
  9. TRANXENE [Suspect]
     Indication: PRODUCT USED FOR UNKNOWN INDICATION
  10. TRANXENE [Suspect]
  11. ATARAX [Suspect]
     Indication: PRODUCT USED FOR UNKNOWN INDICATION
  12. ATARAX [Suspect]
  13. LIPANOR [Suspect]
     Indication: PRODUCT USED FOR UNKNOWN INDICATION
     Route: 048
  14. LIPANOR [Suspect]
     Route: 048
  15. CALCIDOSE [Suspect]
     Indication: PRODUCT USED FOR UNKNOWN INDICATION
  16. CALCIDOSE [Suspect]
  17. FOSAVANCE [Suspect]
     Indication: PRODUCT USED FOR UNKNOWN INDICATION
  18. FOSAVANCE [Suspect]
  19. SKENAN [Suspect]
     Indication: PRODUCT USED FOR UNKNOWN INDICATION
     Route: 048
  20. MORPHINE [Suspect]
     Indication: PRODUCT USED FOR UNKNOWN INDICATION
     Route: 048
  21. LEVOTHYROXINE SODIUM [Concomitant]
  22. NEXIUM [Concomitant]
  23. EUPANTOL [Concomitant]
  24. ACETAMINOPHEN [Concomitant]
  25. ZOLPIDEM TARTRATE [Concomitant]

REACTIONS (3)
  - ACIDOSIS [None]
  - LUNG DISORDER [None]
  - SEPSIS [None]
